FAERS Safety Report 18558706 (Version 2)
Quarter: 2020Q4

REPORT INFORMATION
  Report Type: Spontaneous
  Country: JP (occurrence: JP)
  Receive Date: 20201130
  Receipt Date: 20201202
  Transmission Date: 20210114
  Serious: Yes (Other)
  Sender: FDA-Public Use
  Company Number: JP-PFIZER INC-2020465561

PATIENT
  Age: 33 Year
  Sex: Female

DRUGS (1)
  1. MEDROXYPROGESTERONE ACETATE. [Suspect]
     Active Substance: MEDROXYPROGESTERONE ACETATE
     Indication: UTERINE CANCER
     Dosage: 600 MG, 1X/DAY (FOR NINE MONTHS )
     Route: 048

REACTIONS (2)
  - Off label use [Unknown]
  - Adrenal insufficiency [Unknown]
